FAERS Safety Report 6929310-0 (Version None)
Quarter: 2010Q3

REPORT INFORMATION
  Report Type: 
  Country: None (occurrence: None)
  Receive Date: 20100818
  Receipt Date: 20100816
  Transmission Date: 20110219
  Serious: Yes (Other)
  Sender: FDA-Public Use
  Company Number: A0876048A

PATIENT
  Age: 40 Year
  Sex: Female

DRUGS (1)
  1. ABREVA [Suspect]
     Route: 061
     Dates: start: 20100806, end: 20100815

REACTIONS (7)
  - APPLICATION SITE ANAESTHESIA [None]
  - APPLICATION SITE SWELLING [None]
  - DRUG ADMINISTRATION ERROR [None]
  - HYPOAESTHESIA FACIAL [None]
  - INTRANASAL HYPOAESTHESIA [None]
  - ORAL HERPES [None]
  - VIITH NERVE PARALYSIS [None]
